FAERS Safety Report 8841345 (Version 3)
Quarter: 2012Q4

REPORT INFORMATION
  Report Type: 
  Country: FR (occurrence: FR)
  Receive Date: 20121015
  Receipt Date: 20121113
  Transmission Date: 20130627
  Serious: Yes (Other)
  Sender: FDA-Public Use
  Company Number: FR-PFIZER INC-2012249819

PATIENT
  Age: 72 Year
  Sex: Female
  Weight: 59 kg

DRUGS (2)
  1. EFFEXOR LP [Suspect]
     Indication: DEPRESSION
     Dosage: 0.50, UNK
     Dates: start: 1996
  2. EFFEXOR LP [Suspect]
     Dosage: 100 mg daily
     Dates: start: 201111

REACTIONS (4)
  - Myelodysplastic syndrome [Unknown]
  - Drug ineffective [Not Recovered/Not Resolved]
  - Anxiety [Unknown]
  - Sleep disorder [Unknown]
